FAERS Safety Report 4389164-6 (Version None)
Quarter: 2004Q3

REPORT INFORMATION
  Report Type: 
  Country: None (occurrence: None)
  Receive Date: 20040702
  Receipt Date: 20040518
  Transmission Date: 20050211
  Serious: Yes (Other)
  Sender: FDA-Public Use
  Company Number: 200413870US

PATIENT
  Sex: Male

DRUGS (1)
  1. LANTUS [Suspect]
     Dosage: DOSE: UNK

REACTIONS (4)
  - BLOOD GLUCOSE INCREASED [None]
  - EYE HAEMORRHAGE [None]
  - MEDICATION ERROR [None]
  - PHARMACEUTICAL PRODUCT COMPLAINT [None]
